FAERS Safety Report 8257293-2 (Version None)
Quarter: 2012Q2

REPORT INFORMATION
  Report Type: 
  Country: None (occurrence: None)
  Receive Date: 20120403
  Receipt Date: 20120327
  Transmission Date: 20120825
  Serious: Yes (Hospitalization, Other)
  Sender: FDA-Public Use
  Company Number: US-AMGEN-USASP2012008735

PATIENT
  Age: 78 Year
  Sex: Female
  Weight: 68 kg

DRUGS (28)
  1. RENAGEL [Concomitant]
     Dosage: 2400 MG, TID
     Route: 048
     Dates: start: 20081122
  2. IMODIUM [Concomitant]
     Indication: DIARRHOEA
     Dosage: UNK UNK, PRN
     Route: 048
     Dates: start: 20111202
  3. ACETAMINOPHEN [Concomitant]
     Indication: PAIN
     Dosage: 650 MG, PRN
     Route: 048
     Dates: start: 20111202
  4. LIDOCAINE [Concomitant]
     Dosage: 0.5 ML, PRN
     Route: 023
     Dates: start: 20111202
  5. FERROUS SULFATE TAB [Concomitant]
     Dosage: 500 MG, BID
  6. EPOGEN [Suspect]
     Dosage: 15000 IU, 3 TIMES/WK
     Route: 042
  7. METOCLOPRAMIDE [Concomitant]
     Indication: NAUSEA
     Dosage: 5 MG, PRN
     Route: 042
     Dates: start: 20111202
  8. NITROGLYCERIN [Concomitant]
     Indication: CHEST PAIN
     Dosage: 0.4 MG, PRN
     Route: 060
     Dates: start: 20111202
  9. METOPROLOL SUCCINATE [Concomitant]
     Indication: HYPERTENSION
     Dosage: 75 MG, BID
     Route: 048
  10. METOPROLOL SUCCINATE [Concomitant]
     Dosage: 50 MG, BID
  11. METOPROLOL SUCCINATE [Concomitant]
     Dosage: 150 MG, BID
  12. PROTONIX [Concomitant]
     Dosage: 40 MG, QD
     Route: 048
  13. METOCLOPRAMIDE [Concomitant]
     Indication: VOMITING
  14. OMEPRAZOLE [Concomitant]
     Dosage: 40 MG, QD
     Route: 048
     Dates: start: 20120201
  15. EPOGEN [Suspect]
     Indication: NEPHROGENIC ANAEMIA
     Dosage: 15000 IU, QMO
     Dates: start: 20070101, end: 20120220
  16. COUMADIN [Concomitant]
     Indication: ATRIAL FIBRILLATION
     Dosage: 2 MG, QHS
     Route: 048
  17. COUMADIN [Concomitant]
     Dosage: 3 MG, QHS
     Dates: start: 20100212
  18. PARICALCITOL [Concomitant]
     Dosage: 2 MUG, 3 TIMES/WK
     Route: 042
     Dates: start: 20110413
  19. METOPROLOL SUCCINATE [Concomitant]
     Indication: ATRIAL FIBRILLATION
     Dosage: 100 MG, BID
     Route: 048
     Dates: start: 20120128
  20. PROTONIX [Concomitant]
     Dosage: 40 MG, BID
     Route: 042
  21. EPOGEN [Suspect]
     Dosage: 4000 IU, UNK
     Dates: end: 20110901
  22. DOCUSATE SODIUM [Concomitant]
     Dosage: 100 MG, QD
     Route: 048
     Dates: start: 20120201
  23. DOCUSATE SODIUM [Concomitant]
     Dosage: 250 MG, PRN
  24. PROTONIX [Concomitant]
     Dosage: 40 MG, QHS
     Route: 048
  25. LOSARTAN POTASSIUM [Concomitant]
     Dosage: 50 MG, BID
     Route: 048
  26. EPOGEN [Suspect]
     Dosage: 10000 IU, UNK
     Dates: start: 20111001, end: 20111001
  27. DIPHENHYDRAMINE HCL [Concomitant]
     Indication: PRURITUS
     Dosage: 25 MG, PRN
     Route: 042
     Dates: start: 20111202
  28. ACETAMINOPHEN [Concomitant]
     Indication: PYREXIA

REACTIONS (18)
  - PLEURAL EFFUSION [None]
  - CHEST PAIN [None]
  - FATIGUE [None]
  - MELAENA [None]
  - THERAPEUTIC RESPONSE DECREASED [None]
  - ATRIAL FIBRILLATION [None]
  - NORMOCHROMIC NORMOCYTIC ANAEMIA [None]
  - GASTROINTESTINAL HAEMORRHAGE [None]
  - ABDOMINAL PAIN UPPER [None]
  - BACK PAIN [None]
  - ANAEMIA MACROCYTIC [None]
  - THYMOMA [None]
  - APLASIA PURE RED CELL [None]
  - HYPERTENSION [None]
  - COLON ADENOMA [None]
  - GASTROINTESTINAL ARTERIOVENOUS MALFORMATION [None]
  - LIPOMA [None]
  - CEREBROVASCULAR ACCIDENT [None]
